FAERS Safety Report 11658110 (Version 2)
Quarter: 2015Q4

REPORT INFORMATION
  Report Type: Spontaneous
  Country: US (occurrence: US)
  Receive Date: 20151024
  Receipt Date: 20151028
  Transmission Date: 20160304
  Serious: No
  Sender: FDA-Public Use
  Company Number: US-AMGEN-USASP2015111221

PATIENT
  Age: 71 Year
  Sex: Female

DRUGS (1)
  1. ENBREL [Suspect]
     Active Substance: ETANERCEPT
     Indication: PRODUCT USED FOR UNKNOWN INDICATION
     Dosage: UNK
     Route: 065
     Dates: start: 201509

REACTIONS (17)
  - Dyspepsia [Unknown]
  - Back pain [Unknown]
  - Musculoskeletal pain [Unknown]
  - Eructation [Unknown]
  - Abdominal distension [Unknown]
  - Nausea [Unknown]
  - Blood pressure increased [Unknown]
  - Gastrointestinal disorder [Unknown]
  - Flatulence [Unknown]
  - Irritable bowel syndrome [Unknown]
  - Decreased appetite [Unknown]
  - Renal disorder [Unknown]
  - Condition aggravated [Unknown]
  - Vomiting [Unknown]
  - Mobility decreased [Unknown]
  - Headache [Unknown]
  - Back disorder [Unknown]

NARRATIVE: CASE EVENT DATE: 2015
